FAERS Safety Report 14493039 (Version 1)
Quarter: 2018Q1

REPORT INFORMATION
  Report Type: Spontaneous
  Country: US (occurrence: US)
  Receive Date: 20180205
  Receipt Date: 20180205
  Transmission Date: 20180509
  Serious: Yes (Other)
  Sender: FDA-Public Use
  Company Number: None

PATIENT
  Age: 62 Year
  Sex: Female

DRUGS (1)
  1. LISINOPRIL. [Suspect]
     Active Substance: LISINOPRIL

REACTIONS (9)
  - Dysphagia [None]
  - Blood pressure increased [None]
  - Swollen tongue [None]
  - Respiratory rate increased [None]
  - Heart rate increased [None]
  - Dysphonia [None]
  - Drug hypersensitivity [None]
  - Drooling [None]
  - Dyspnoea [None]
